FAERS Safety Report 6678301-6 (Version None)
Quarter: 2010Q2

REPORT INFORMATION
  Report Type: 
  Country: None (occurrence: None)
  Receive Date: 20100413
  Receipt Date: 20100331
  Transmission Date: 20101027
  Serious: Yes (Hospitalization, Other)
  Sender: FDA-Public Use
  Company Number: US-ASTRAZENECA-2010SE15086

PATIENT
  Age: 390 Month
  Sex: Female

DRUGS (6)
  1. SEROQUEL [Suspect]
     Dosage: 400-600MG
     Route: 048
     Dates: start: 20000101
  2. CLONAZEPAM [Concomitant]
     Dosage: 0.5-1 MG
     Dates: start: 20020323
  3. TRAZODONE [Concomitant]
     Dates: start: 20020323
  4. EFFEXOR XR [Concomitant]
     Dosage: 75-150MG
     Dates: start: 20020323
  5. XENICAL [Concomitant]
     Dates: start: 20020307
  6. VISTARIL [Concomitant]
     Dates: start: 20030520

REACTIONS (17)
  - DIABETIC KETOACIDOSIS [None]
  - DYSPEPSIA [None]
  - DYSPNOEA [None]
  - HEADACHE [None]
  - HOT FLUSH [None]
  - HYPERPROLACTINAEMIA [None]
  - HYPERTRIGLYCERIDAEMIA [None]
  - PANCREATITIS ACUTE [None]
  - PITUITARY TUMOUR BENIGN [None]
  - RENAL FAILURE ACUTE [None]
  - RESPIRATORY ARREST [None]
  - RESPIRATORY FAILURE [None]
  - RHABDOMYOLYSIS [None]
  - TACHYCARDIA [None]
  - TOBACCO USER [None]
  - VERTIGO [None]
  - WEIGHT INCREASED [None]
